FAERS Safety Report 5684595-6 (Version None)
Quarter: 2008Q1

REPORT INFORMATION
  Report Type: 
  Country: None (occurrence: None)
  Receive Date: 20080328
  Receipt Date: 20070326
  Transmission Date: 20080703
  Serious: Yes (Life-Threatening, Hospitalization)
  Sender: FDA-Public Use
  Company Number: US-BRISTOL-MYERS SQUIBB COMPANY-13727227

PATIENT
  Sex: Female
  Weight: 99 kg

DRUGS (1)
  1. ERBITUX [Suspect]
     Dates: start: 20070326, end: 20070326

REACTIONS (2)
  - PULSE ABSENT [None]
  - RESPIRATORY ARREST [None]
